FAERS Safety Report 6129352-1 (Version None)
Quarter: 2009Q1

REPORT INFORMATION
  Report Type: 
  Country: None (occurrence: None)
  Receive Date: 20090320
  Receipt Date: 20020402
  Transmission Date: 20090719
  Serious: No
  Sender: FDA-Public Use
  Company Number: 005883

PATIENT
  Age: 60 Week
  Sex: Male
  Weight: 11.3 kg

DRUGS (7)
  1. BUSULFEX (BUSULFEX) INJECTION   BONE MARROW TRANSPLANT(BONE MARROW TRA [Suspect]
     Indication: BONE MARROW TRANSPLANT
     Dosage: 54 MG, DAILY DOSE,  INTRAVENOUS
     Route: 042
     Dates: start: 20020319, end: 20020323
  2. MELPHALAN(MELPHALAN)INJECTION [Suspect]
     Indication: BONE MARROW TRANSPLANT
     Dosage: 140 MG/M2, DAILY DOSE  INTRAVENOUS
     Route: 042
     Dates: start: 20020324, end: 20020324
  3. ALIZAPRIDE (ALIZAPRIDE) [Concomitant]
  4. ONDANSETRON HCL [Concomitant]
  5. URSOLVAN-200 (URSODEOXYCHOLIC ACID) [Concomitant]
  6. AMPHOTERICIN B [Concomitant]
  7. COLISTIMETHATE SODIUM (COLISTIN MESILATE SODIUM) [Concomitant]

REACTIONS (14)
  - ANAEMIA [None]
  - BACTERIAL SEPSIS [None]
  - BLOOD CULTURE POSITIVE [None]
  - CHILLS [None]
  - DIARRHOEA [None]
  - FEBRILE BONE MARROW APLASIA [None]
  - HAEMATOCHEZIA [None]
  - LEUKOPENIA [None]
  - MUCOSAL INFLAMMATION [None]
  - PYREXIA [None]
  - TACHYCARDIA [None]
  - TACHYPNOEA [None]
  - THROMBOCYTOPENIA [None]
  - VOMITING [None]
